FAERS Safety Report 13740083 (Version 1)
Quarter: 2017Q3

REPORT INFORMATION
  Report Type: Spontaneous
  Country: US (occurrence: US)
  Receive Date: 20170710
  Receipt Date: 20170710
  Transmission Date: 20171127
  Serious: Yes (Death)
  Sender: FDA-Public Use
  Company Number: None

PATIENT
  Age: 67 Year
  Sex: Male
  Weight: 148.5 kg

DRUGS (1)
  1. MAGNEVIST [Suspect]
     Active Substance: GADOPENTETATE DIMEGLUMINE
     Indication: NUCLEAR MAGNETIC RESONANCE IMAGING
     Dosage: ?          OTHER DOSE:ML;OTHER FREQUENCY:ONCE;?
     Route: 041
     Dates: start: 20170703

REACTIONS (2)
  - Contrast media allergy [None]
  - Anaphylactic reaction [None]

NARRATIVE: CASE EVENT DATE: 20170703
